FAERS Safety Report 16123985 (Version 2)
Quarter: 2019Q2

REPORT INFORMATION
  Report Type: Spontaneous
  Country: JP (occurrence: JP)
  Receive Date: 20190327
  Receipt Date: 20190411
  Transmission Date: 20190711
  Serious: Yes (Hospitalization)
  Sender: FDA-Public Use
  Company Number: JP-ASTRAZENECA-2019SE47253

PATIENT
  Age: 60 Year
  Sex: Female

DRUGS (4)
  1. TRYPTANOL [Concomitant]
     Active Substance: AMITRIPTYLINE
  2. BIPRESSO (QUETIAPINE FUMARATE) [Suspect]
     Active Substance: QUETIAPINE FUMARATE
     Indication: DEPRESSIVE SYMPTOM
     Route: 048
     Dates: start: 20181121, end: 20181215
  3. LENDORMIN [Concomitant]
     Active Substance: BROTIZOLAM
     Dosage: PER ORAL NOS
     Route: 048
  4. WYPAX [Concomitant]
     Active Substance: LORAZEPAM

REACTIONS (1)
  - Status epilepticus [Recovered/Resolved]

NARRATIVE: CASE EVENT DATE: 20181216
